FAERS Safety Report 13327849 (Version 1)
Quarter: 2017Q1

REPORT INFORMATION
  Report Type: Spontaneous
  Country: US (occurrence: US)
  Receive Date: 20170313
  Receipt Date: 20170313
  Transmission Date: 20170428
  Serious: No
  Sender: FDA-Public Use
  Company Number: US-JNJFOC-20170126890

PATIENT
  Sex: Female
  Weight: 77.11 kg

DRUGS (2)
  1. WOMENS ROGAINE UNSCENTED [Suspect]
     Active Substance: MINOXIDIL
     Indication: ALOPECIA
     Dosage: 3-4 CAPFULS
     Route: 061
     Dates: start: 20170122
  2. WOMENS ROGAINE UNSCENTED [Suspect]
     Active Substance: MINOXIDIL
     Route: 061

REACTIONS (6)
  - Product use issue [Unknown]
  - Product quality issue [Unknown]
  - Hair disorder [Unknown]
  - Off label use [Unknown]
  - Hair texture abnormal [Unknown]
  - Overdose [Unknown]
